FAERS Safety Report 4299457-9 (Version None)
Quarter: 2004Q1

REPORT INFORMATION
  Report Type: 
  Country: None (occurrence: None)
  Receive Date: 20040217
  Receipt Date: 20420202
  Transmission Date: 20041129
  Serious: Yes (Other)
  Sender: FDA-Public Use
  Company Number: 2003039498

PATIENT
  Age: 74 Year
  Sex: Male

DRUGS (4)
  1. NEURONTIN [Suspect]
     Indication: FACIAL NEURALGIA
     Dates: start: 20030317, end: 20030423
  2. PHENOBARBITAL SODIUM (PHENOBARBITAL SODIUM) [Suspect]
     Indication: EPILEPSY
     Dosage: 150 MG (DAILY), ORAL
     Route: 048
     Dates: start: 19920101
  3. BACLOFEN [Concomitant]
  4. PARACETAMOL [Concomitant]

REACTIONS (4)
  - CONVULSION [None]
  - DISEASE RECURRENCE [None]
  - DRUG INTERACTION [None]
  - MOTOR DYSFUNCTION [None]
